FAERS Safety Report 15131217 (Version 1)
Quarter: 2018Q3

REPORT INFORMATION
  Report Type: Spontaneous
  Country: US (occurrence: US)
  Receive Date: 20180615
  Receipt Date: 20180615
  Transmission Date: 20181010
  Serious: Yes (Other)
  Sender: FDA-Public Use
  Company Number: None

PATIENT
  Age: 95 Year
  Sex: Female
  Weight: 64.35 kg

DRUGS (8)
  1. FUROSEMIDE. [Concomitant]
     Active Substance: FUROSEMIDE
  2. LUMIGAN [Concomitant]
     Active Substance: BIMATOPROST
  3. WARFARIN [Concomitant]
     Active Substance: WARFARIN
  4. ZOLPIDEM [Concomitant]
     Active Substance: ZOLPIDEM\ZOLPIDEM TARTRATE
  5. ALLOPURINOL. [Concomitant]
     Active Substance: ALLOPURINOL
  6. LISINOPRIL. [Concomitant]
     Active Substance: LISINOPRIL
  7. DIGOX [Concomitant]
     Active Substance: DIGOXIN
  8. IBRANCE [Suspect]
     Active Substance: PALBOCICLIB
     Indication: BREAST CANCER
     Route: 048
     Dates: start: 20160810, end: 20180614

REACTIONS (1)
  - Disease progression [None]
